FAERS Safety Report 19912809 (Version 1)
Quarter: 2021Q4

REPORT INFORMATION
  Report Type: Spontaneous
  Country: US (occurrence: US)
  Receive Date: 20211004
  Receipt Date: 20211004
  Transmission Date: 20220303
  Serious: No
  Sender: FDA-Public Use
  Company Number: US-PFIZER INC-2021829872

PATIENT
  Age: 81 Year
  Sex: Male
  Weight: 64.1 kg

DRUGS (19)
  1. VYNDAMAX [Suspect]
     Active Substance: TAFAMIDIS
     Indication: Coronary artery disease
     Dosage: 61 MG, DAILY
     Route: 048
     Dates: start: 202009, end: 20210526
  2. VYNDAMAX [Suspect]
     Active Substance: TAFAMIDIS
     Indication: Cardiac failure congestive
  3. VYNDAMAX [Suspect]
     Active Substance: TAFAMIDIS
     Indication: Ischaemic cardiomyopathy
  4. VYNDAMAX [Suspect]
     Active Substance: TAFAMIDIS
     Indication: Atrial fibrillation
  5. VYNDAMAX [Suspect]
     Active Substance: TAFAMIDIS
     Indication: Amyloidosis senile
  6. VYNDAMAX [Suspect]
     Active Substance: TAFAMIDIS
     Indication: Mitral valve repair
  7. VYNDAMAX [Suspect]
     Active Substance: TAFAMIDIS
     Indication: Essential hypertension
  8. VYNDAMAX [Suspect]
     Active Substance: TAFAMIDIS
     Indication: Dyslipidaemia
  9. VYNDAMAX [Suspect]
     Active Substance: TAFAMIDIS
     Indication: Carotid artery stenosis
  10. LIPITOR [Concomitant]
     Active Substance: ATORVASTATIN CALCIUM
     Dosage: 40 MG, DAILY
     Route: 048
  11. COREG [Concomitant]
     Active Substance: CARVEDILOL
     Dosage: 3.125 MG, 2X/DAY
     Route: 048
  12. COZAAR [Concomitant]
     Active Substance: LOSARTAN POTASSIUM
     Dosage: 25 MG, DAILY
     Route: 048
  13. K-DUR [Concomitant]
     Active Substance: POTASSIUM CHLORIDE
     Dosage: 80 MEQ, DAILY
     Route: 048
  14. DEMADEX [Concomitant]
     Active Substance: TORSEMIDE
     Dosage: 80 MG, DAILY
     Route: 048
  15. COENZYME Q10 [Concomitant]
     Active Substance: DIETARY SUPPLEMENT\UBIDECARENONE
     Dosage: 100 MG, DAILY
     Route: 048
  16. GLUCOSAMINE MSM COMPLEX [Concomitant]
     Dosage: 1500 MG, DAILY
     Route: 048
  17. GREEN TEA EXTRACT [CAMELLIA SINENSIS] [Concomitant]
     Dosage: 500 MG, DAILY
     Route: 048
  18. HERBALS\TURMERIC [Concomitant]
     Active Substance: HERBALS\TURMERIC
     Dosage: 500 MG, DAILY
     Route: 048
  19. XARELTO [Concomitant]
     Active Substance: RIVAROXABAN
     Dosage: 20 MG, 1X/DAY
     Route: 048

REACTIONS (6)
  - Rash erythematous [Recovered/Resolved]
  - Pruritus [Recovered/Resolved]
  - Hypersensitivity [Recovered/Resolved]
  - Dyspnoea [Recovered/Resolved]
  - Swelling [Recovered/Resolved]
  - Hypoacusis [Recovered/Resolved]

NARRATIVE: CASE EVENT DATE: 20200101
